FAERS Safety Report 12292282 (Version 7)
Quarter: 2018Q2

REPORT INFORMATION
  Report Type: Spontaneous
  Country: FR (occurrence: FR)
  Receive Date: 20160421
  Receipt Date: 20180515
  Transmission Date: 20180711
  Serious: Yes (Hospitalization, Disabling, Congenital Anomaly, Other)
  Sender: FDA-Public Use
  Company Number: FR-ABBVIE-16P-163-1610499-00

PATIENT
  Sex: Male

DRUGS (3)
  1. DEPAKINE CHRONO [Suspect]
     Active Substance: VALPROATE SODIUM
     Route: 048
  2. DEPAKINE CHRONO [Suspect]
     Active Substance: VALPROATE SODIUM
     Indication: MATERNAL EXPOSURE TIMING UNSPECIFIED
     Route: 064
  3. DEPAKINE CHRONO [Suspect]
     Active Substance: VALPROATE SODIUM
     Indication: GENERALISED TONIC-CLONIC SEIZURE
     Route: 048

REACTIONS (16)
  - Psychomotor retardation [Unknown]
  - Foetal anticonvulsant syndrome [Unknown]
  - Kyphosis [Unknown]
  - Tension headache [Unknown]
  - Encopresis [Recovered/Resolved]
  - Intellectual disability [Unknown]
  - Fear [Unknown]
  - Personality disorder [Unknown]
  - Abnormal behaviour [Recovering/Resolving]
  - Foetal exposure during pregnancy [Unknown]
  - Generalised tonic-clonic seizure [Unknown]
  - Learning disorder [Unknown]
  - Speech disorder [Recovering/Resolving]
  - Mental disorder [Not Recovered/Not Resolved]
  - Developmental delay [Unknown]
  - Ear malformation [Unknown]

NARRATIVE: CASE EVENT DATE: 199411
